FAERS Safety Report 13747212 (Version 3)
Quarter: 2017Q4

REPORT INFORMATION
  Report Type: Spontaneous
  Country: GB (occurrence: GB)
  Receive Date: 20170712
  Receipt Date: 20171005
  Transmission Date: 20180320
  Serious: Yes (Disabling, Other)
  Sender: FDA-Public Use
  Company Number: GB-GILEAD-2017-0282358

PATIENT
  Age: 54 Year
  Sex: Male

DRUGS (3)
  1. CLOPIXOL                           /00876702/ [Concomitant]
     Active Substance: ZUCLOPENTHIXOL ACETATE
     Indication: SCHIZOPHRENIA
  2. EPCLUSA [Suspect]
     Active Substance: SOFOSBUVIR\VELPATASVIR
     Indication: CHRONIC HEPATITIS C
     Dosage: 1 DF, QD
     Route: 048
     Dates: start: 20170621, end: 20170705
  3. SUBUTEX [Concomitant]
     Active Substance: BUPRENORPHINE HYDROCHLORIDE
     Indication: DRUG USE DISORDER
     Dosage: UNK

REACTIONS (5)
  - Malaise [Recovering/Resolving]
  - Agitation [Recovering/Resolving]
  - Mental impairment [Recovering/Resolving]
  - Emotional distress [Recovering/Resolving]
  - Stress [Unknown]

NARRATIVE: CASE EVENT DATE: 20170704
